FAERS Safety Report 8799397 (Version 1)
Quarter: 2012Q4

REPORT INFORMATION
  Report Type: Spontaneous
  Country: US (occurrence: None)
  Receive Date: 20120918
  Receipt Date: 20120918
  Transmission Date: 20130627
  Serious: No
  Sender: FDA-Public Use
  Company Number: None

PATIENT
  Age: 56 Year
  Sex: Female
  Weight: 92.5 kg

DRUGS (1)
  1. FORTAMET [Suspect]
     Indication: DIABETES
     Dates: start: 20120911, end: 20120911

REACTIONS (2)
  - Nausea [None]
  - Abdominal pain [None]
